FAERS Safety Report 7577074-2 (Version None)
Quarter: 2011Q2

REPORT INFORMATION
  Report Type: 
  Country: None (occurrence: None)
  Receive Date: 20110628
  Receipt Date: 20110602
  Transmission Date: 20111010
  Serious: Yes (Hospitalization, Other)
  Sender: FDA-Public Use
  Company Number: US-BAYER-2010-003177

PATIENT
  Age: 39 Year
  Sex: Female
  Weight: 96 kg

DRUGS (21)
  1. MACROBID [Concomitant]
     Dosage: UNK
     Dates: start: 20000401
  2. LEVAQUIN [Concomitant]
     Dosage: UNK
     Dates: start: 20050201
  3. PREVPAC [Concomitant]
     Dosage: UNK
     Dates: start: 20070401
  4. COUMADIN [Concomitant]
     Indication: ANTICOAGULANT THERAPY
     Dosage: UNK
     Dates: start: 20081201, end: 20090601
  5. AMOXICILLIN [Concomitant]
     Dosage: UNK
     Dates: start: 20010501
  6. CIPROFLOXACIN [Concomitant]
     Dosage: UNK
     Dates: start: 20070401
  7. METRONIDAZOLE [Concomitant]
     Dosage: UNK
     Dates: start: 20070401
  8. COUMADIN [Concomitant]
     Dosage: UNK
     Dates: start: 20100101, end: 20100701
  9. YAZ [Suspect]
     Indication: PREMENSTRUAL SYNDROME
     Dosage: UNK
     Dates: start: 20081001, end: 20081101
  10. METOPROLOL TARTRATE [Concomitant]
     Indication: HYPERTENSION
     Dosage: UNK
     Dates: start: 20081201
  11. METOPROLOL TARTRATE [Concomitant]
     Dosage: UNK
     Dates: start: 20090401
  12. DIOVAN HCT [Concomitant]
  13. HEPARIN [Concomitant]
     Indication: ANTICOAGULANT THERAPY
     Dosage: UNK
     Dates: start: 20081101
  14. GABAPENTIN [Concomitant]
     Indication: ANALGESIC THERAPY
     Dosage: UNK
     Dates: start: 20090201, end: 20090701
  15. ANTI-ASTHMATICS [Concomitant]
  16. XOPENEX [Concomitant]
  17. CLONIDINE [Concomitant]
     Dosage: UNK UNK, PRN
  18. DICLOXACILLIN [Concomitant]
     Dosage: UNK
     Dates: start: 20001001
  19. AUGMENTIN '125' [Concomitant]
     Dosage: UNK
     Dates: start: 20020201
  20. METOPROLOL TARTRATE [Concomitant]
     Dosage: UNK
     Dates: start: 20090501, end: 20090801
  21. METOPROLOL TARTRATE [Concomitant]
     Dosage: UNK
     Dates: start: 20091101, end: 20100601

REACTIONS (10)
  - EMOTIONAL DISTRESS [None]
  - PAIN [None]
  - CHEST PAIN [None]
  - PULMONARY EMBOLISM [None]
  - PULMONARY INFARCTION [None]
  - ANXIETY [None]
  - INJURY [None]
  - BACK PAIN [None]
  - DYSPNOEA [None]
  - MENTAL DISORDER [None]
